FAERS Safety Report 8292438-X (Version None)
Quarter: 2012Q2

REPORT INFORMATION
  Report Type: 
  Country: None (occurrence: None)
  Receive Date: 20120417
  Receipt Date: 20120413
  Transmission Date: 20120825
  Serious: Yes (Hospitalization)
  Sender: FDA-Public Use
  Company Number: US-GILEAD-2012-0052500

PATIENT
  Sex: Female

DRUGS (3)
  1. LETAIRIS [Suspect]
     Indication: PULMONARY HYPERTENSION
     Dosage: 10 MG, UNK
     Route: 048
     Dates: start: 20120124, end: 20120412
  2. ADCIRCA [Concomitant]
  3. LETAIRIS [Suspect]
     Indication: CONNECTIVE TISSUE DISORDER

REACTIONS (5)
  - PULMONARY ARTERIAL HYPERTENSION [None]
  - HEADACHE [None]
  - VISION BLURRED [None]
  - FLUSHING [None]
  - VISUAL IMPAIRMENT [None]
